FAERS Safety Report 5472738-9 (Version None)
Quarter: 2007Q3

REPORT INFORMATION
  Report Type: 
  Country: None (occurrence: None)
  Receive Date: 20070927
  Receipt Date: 20070919
  Transmission Date: 20080115
  Serious: Yes (Death, Hospitalization)
  Sender: FDA-Public Use
  Company Number: 2007-03127

PATIENT
  Age: 69 Year
  Sex: Male
  Weight: 70.8 kg

DRUGS (14)
  1. VELCADE [Suspect]
     Indication: MULTIPLE MYELOMA
     Dosage: 1.30 MG/M2,
     Dates: start: 20070730, end: 20070831
  2. DOXORUBICIN HCL [Suspect]
     Indication: MULTIPLE MYELOMA
     Dosage: 36.00 MG/M2,
     Dates: start: 20070730, end: 20070820
  3. DEXAMETHASONE [Suspect]
     Indication: MULTIPLE MYELOMA
  4. PYRIDOXINE (PYRIDOXINE) [Concomitant]
  5. DOXAZOSIN MESYLATE [Concomitant]
  6. TRANSTEC TTS (BUPRENORPHINE) [Concomitant]
  7. ACYCLOVIR [Concomitant]
  8. MULTIVITAMINS (ERGOCALCIFEROL, PANTHENOL, NICOTINAMIDE, RIBOFLAVIN, TH [Concomitant]
  9. INDAPAMIDE [Concomitant]
  10. FOLIC ACID [Concomitant]
  11. CHLORAMPHENICOL [Concomitant]
  12. SALBUTAMOL (SALBUTAMOL) [Concomitant]
  13. SERETIDE (FLUTICASONE PROPIONATE, SALMETEROL) [Concomitant]
  14. NYSTATIN [Concomitant]

REACTIONS (8)
  - ACUTE RESPIRATORY DISTRESS SYNDROME [None]
  - DIARRHOEA [None]
  - DYSURIA [None]
  - FALL [None]
  - GENERAL PHYSICAL HEALTH DETERIORATION [None]
  - HALLUCINATION [None]
  - LOWER RESPIRATORY TRACT INFECTION [None]
  - URINARY TRACT INFECTION [None]
